FAERS Safety Report 7406391-1 (Version None)
Quarter: 2011Q2

REPORT INFORMATION
  Report Type: 
  Country: None (occurrence: None)
  Receive Date: 20110411
  Receipt Date: 20110329
  Transmission Date: 20111010
  Serious: Yes (Other)
  Sender: FDA-Public Use
  Company Number: PHHY2011US22976

PATIENT
  Sex: Female

DRUGS (11)
  1. ASPIRIN [Concomitant]
  2. FEMARA [Suspect]
     Indication: BREAST CANCER
     Dosage: 2.5 MG, QD
  3. PRILOSEC [Concomitant]
     Dosage: 1 DF,
  4. ARIMIDEX [Suspect]
     Indication: BREAST CANCER
     Dosage: 1 MG,
  5. OSTEO BI-FLEX [Concomitant]
  6. GARLIC [Concomitant]
  7. CINNAMON [Concomitant]
  8. DILTIAZEM [Concomitant]
     Dosage: 120 MG,
  9. FISH OIL [Concomitant]
  10. FLAX SEED OIL [Concomitant]
  11. VITAMIN B COMPLEX CAP [Concomitant]

REACTIONS (9)
  - ARRHYTHMIA [None]
  - BREAST INFECTION [None]
  - LUNG DISORDER [None]
  - NEOPLASM MALIGNANT [None]
  - FATIGUE [None]
  - BREAST SWELLING [None]
  - BONE PAIN [None]
  - DEPRESSION [None]
  - ANXIETY [None]
